FAERS Safety Report 5086465-3 (Version None)
Quarter: 2006Q3

REPORT INFORMATION
  Report Type: 
  Country: None (occurrence: None)
  Receive Date: 20060703
  Receipt Date: 20051209
  Transmission Date: 20061208
  Serious: No
  Sender: FDA-Public Use
  Company Number: 2005S1011790

PATIENT
  Age: 53 Year
  Sex: Male

DRUGS (6)
  1. CLOZAPINE [Suspect]
     Indication: BIPOLAR DISORDER
     Dosage: 500 MG;HS;ORAL
     Route: 048
     Dates: start: 20030601
  2. NEFAZODONE HCL [Concomitant]
  3. OXCARBAZEPINE [Concomitant]
  4. PAROXETINE HYDROCHLORIDE [Concomitant]
  5. LANSOPRAZOLE [Concomitant]
  6. ANTINEOPLASTIC AGENTS [Concomitant]

REACTIONS (2)
  - GRANULOCYTOPENIA [None]
  - LEUKOPENIA [None]
